FAERS Safety Report 14582733 (Version 1)
Quarter: 2018Q1

REPORT INFORMATION
  Report Type: Report from Study
  Country: GB (occurrence: GB)
  Receive Date: 20180228
  Receipt Date: 20180228
  Transmission Date: 20180509
  Serious: Yes (Other)
  Sender: FDA-Public Use
  Company Number: GB-TEVA-2018-GB-861610

PATIENT
  Sex: Female

DRUGS (1)
  1. COPAXONE [Suspect]
     Active Substance: GLATIRAMER ACETATE
     Route: 058
     Dates: start: 20170620

REACTIONS (9)
  - Injection site pain [Unknown]
  - Pain in extremity [Unknown]
  - Fatigue [Unknown]
  - Multiple sclerosis [Unknown]
  - Dizziness [Unknown]
  - Injection site urticaria [Unknown]
  - Injection site erythema [Unknown]
  - Injection site mass [Unknown]
  - Drug ineffective [Unknown]
